FAERS Safety Report 6410742-4 (Version None)
Quarter: 2009Q4

REPORT INFORMATION
  Report Type: 
  Country: None (occurrence: None)
  Receive Date: 20091022
  Receipt Date: 20091008
  Transmission Date: 20100525
  Serious: Yes (Other)
  Sender: FDA-Public Use
  Company Number: US-JNJFOC-20090801722

PATIENT
  Age: 14 Year
  Sex: Male

DRUGS (6)
  1. IBUPROFEN [Suspect]
     Indication: HEADACHE
     Dosage: 1 DOSE
     Route: 065
  2. FLOVENT [Concomitant]
     Route: 065
  3. ALBUTEROL [Concomitant]
     Route: 065
  4. CROMOLYN SODIUM [Concomitant]
     Route: 065
  5. IPRATROPIUM [Concomitant]
     Dosage: COMPRESSOR-DRIVEN  NEBULIZER BID AND AS NEEDED,
     Route: 045
  6. ZAFIRLUKAST [Concomitant]
     Route: 065

REACTIONS (7)
  - ANAPHYLACTIC REACTION [None]
  - ASTHENIA [None]
  - CHEST PAIN [None]
  - COUGH [None]
  - DYSPNOEA [None]
  - LARYNGOSPASM [None]
  - RHINITIS [None]
